FAERS Safety Report 8324140 (Version 9)
Quarter: 2013Q1

REPORT INFORMATION
  Report Type: Spontaneous
  Country: US (occurrence: US)
  Receive Date: 20120105
  Receipt Date: 20130322
  Transmission Date: 20140127
  Serious: Yes (Other)
  Sender: FDA-Public Use
  Company Number: US-ASTRAZENECA-2011SE78595

PATIENT
  Age: 47 Year
  Sex: Female
  Weight: 93.9 kg

DRUGS (15)
  1. NEXIUM [Suspect]
     Indication: GASTROOESOPHAGEAL REFLUX DISEASE
     Route: 048
  2. NEXIUM [Suspect]
     Indication: GASTROOESOPHAGEAL REFLUX DISEASE
     Dosage: DOUBLE DOSAGE
     Route: 048
  3. NEXIUM [Suspect]
     Indication: GASTROOESOPHAGEAL REFLUX DISEASE
     Route: 048
  4. NEXIUM [Suspect]
     Indication: GASTROOESOPHAGEAL REFLUX DISEASE
     Route: 048
  5. SEROQUEL XR [Suspect]
     Indication: BIPOLAR DISORDER
     Route: 048
  6. SEROQUEL XR [Suspect]
     Indication: BIPOLAR DISORDER
     Route: 048
  7. TOPROL XL [Suspect]
     Route: 048
  8. LISINOPRIL [Concomitant]
     Indication: BLOOD PRESSURE ABNORMAL
     Route: 048
  9. BABY ASPIRIN [Concomitant]
     Indication: BLOOD PRESSURE ABNORMAL
     Dosage: DAILY
     Route: 048
  10. METOPROLOL TARTRATE [Concomitant]
     Indication: BLOOD PRESSURE ABNORMAL
     Route: 048
  11. AMLODIPINE [Concomitant]
     Indication: BLOOD PRESSURE ABNORMAL
     Route: 048
  12. TOPAMAX [Concomitant]
     Indication: BLOOD PRESSURE ABNORMAL
     Route: 048
  13. PRESTIQUE [Concomitant]
     Indication: DEPRESSION
     Route: 048
  14. XANAX [Concomitant]
     Route: 048
  15. MELOXICAM [Concomitant]
     Indication: ARTHROPATHY
     Route: 048

REACTIONS (23)
  - Suicidal ideation [Unknown]
  - Adverse event [Unknown]
  - Crying [Unknown]
  - Regurgitation [Unknown]
  - Angina pectoris [Unknown]
  - Mental disorder [Unknown]
  - Pain [Unknown]
  - Gastric disorder [Unknown]
  - Haemoptysis [Unknown]
  - Regurgitation [Unknown]
  - Gastrooesophageal reflux disease [Unknown]
  - Hypertension [Unknown]
  - Aggression [Unknown]
  - Malaise [Unknown]
  - Chest pain [Unknown]
  - Visual impairment [Unknown]
  - Agitation [Unknown]
  - Depression [Unknown]
  - Insomnia [Unknown]
  - Abdominal pain upper [Unknown]
  - Vomiting [Unknown]
  - Drug dose omission [Unknown]
  - Intentional drug misuse [Unknown]
